FAERS Safety Report 5073232-X (Version None)
Quarter: 2006Q3

REPORT INFORMATION
  Report Type: 
  Country: None (occurrence: None)
  Receive Date: 20060710
  Receipt Date: 20060124
  Transmission Date: 20061208
  Serious: Yes (Life-Threatening)
  Sender: FDA-Public Use
  Company Number: US-2006-001372

PATIENT
  Age: 31 Year
  Sex: Female
  Weight: 83.9 kg

DRUGS (1)
  1. ULTRAVIST 300 [Suspect]
     Indication: COMPUTERISED TOMOGRAM
     Dosage: 98 ML, 1 DOSE, INTRAVENOUS
     Route: 042
     Dates: start: 20060116, end: 20060116

REACTIONS (3)
  - DYSPNOEA [None]
  - OXYGEN SATURATION DECREASED [None]
  - THROAT TIGHTNESS [None]
